FAERS Safety Report 10615503 (Version 1)
Quarter: 2014Q4

REPORT INFORMATION
  Report Type: Spontaneous
  Country: US (occurrence: US)
  Receive Date: 20141201
  Receipt Date: 20141201
  Transmission Date: 20150529
  Serious: No
  Sender: FDA-Public Use
  Company Number: US-PFIZER INC-2014327430

PATIENT
  Sex: Male

DRUGS (1)
  1. NEURONTIN [Suspect]
     Active Substance: GABAPENTIN
     Dosage: 100 MG, UNK
     Dates: start: 201410

REACTIONS (3)
  - Agitation [Unknown]
  - Nervousness [Unknown]
  - Stress [Unknown]
